FAERS Safety Report 25389846 (Version 1)
Quarter: 2025Q2

REPORT INFORMATION
  Report Type: Spontaneous
  Country: US (occurrence: US)
  Receive Date: 20250603
  Receipt Date: 20250603
  Transmission Date: 20250716
  Serious: Yes (Other)
  Sender: AMGEN
  Company Number: US-AMGEN-USASP2025105027

PATIENT
  Age: 75 Year
  Sex: Female

DRUGS (1)
  1. REPATHA [Suspect]
     Active Substance: EVOLOCUMAB
     Indication: Blood cholesterol abnormal
     Dosage: 140 MILLIGRAM, Q2WK, (START DATE: AT LEAST YEARS AGO)
     Route: 065

REACTIONS (13)
  - Cardiac pacemaker replacement [Unknown]
  - Implantable defibrillator replacement [Unknown]
  - Cardiac ablation [Unknown]
  - Arthritis [Unknown]
  - Injection site discolouration [Unknown]
  - Dyspnoea [Unknown]
  - Accidental exposure to product [Unknown]
  - Heart rate increased [Unknown]
  - Anxiety [Unknown]
  - Device use error [Unknown]
  - Incorrect dose administered by device [Unknown]
  - Device difficult to use [Unknown]
  - Dizziness [Unknown]

NARRATIVE: CASE EVENT DATE: 20250101
